FAERS Safety Report 24672162 (Version 3)
Quarter: 2025Q1

REPORT INFORMATION
  Report Type: Report from Study
  Country: US (occurrence: US)
  Receive Date: 20241127
  Receipt Date: 20250205
  Transmission Date: 20250408
  Serious: Yes (Hospitalization)
  Sender: JOHNSON AND JOHNSON
  Company Number: US-JNJFOC-20241129767

PATIENT
  Age: 56 Year
  Sex: Female

DRUGS (3)
  1. SELEXIPAG [Suspect]
     Active Substance: SELEXIPAG
     Indication: Pulmonary arterial hypertension
     Route: 048
     Dates: start: 202205
  2. ADEMPAS [Concomitant]
     Active Substance: RIOCIGUAT
     Dates: start: 202205
  3. ADEMPAS [Concomitant]
     Active Substance: RIOCIGUAT
     Dates: start: 20241105

REACTIONS (3)
  - Pain [Unknown]
  - Peripheral swelling [Unknown]
  - Hypertension [Unknown]

NARRATIVE: CASE EVENT DATE: 20241101
